FAERS Safety Report 9697396 (Version 1)
Quarter: 2013Q4

REPORT INFORMATION
  Report Type: Spontaneous
  Country: DE (occurrence: DE)
  Receive Date: 20131120
  Receipt Date: 20131120
  Transmission Date: 20140711
  Serious: Yes (Life-Threatening, Other)
  Sender: FDA-Public Use
  Company Number: DE-JNJFOC-20131107920

PATIENT
  Sex: Female

DRUGS (2)
  1. DOXORUBICIN HYDROCHLORIDE (CAELYX) [Suspect]
     Indication: OVARIAN CANCER RECURRENT
     Route: 042
  2. VANDETANIB [Suspect]
     Indication: OVARIAN CANCER RECURRENT
     Route: 048

REACTIONS (14)
  - Ovarian cancer recurrent [Unknown]
  - Neutropenia [Unknown]
  - Leukopenia [Unknown]
  - Aspartate aminotransferase increased [Unknown]
  - Pruritus [Unknown]
  - Skin toxicity [Unknown]
  - Mucosal inflammation [Unknown]
  - Rash [Unknown]
  - Gamma-glutamyltransferase increased [Unknown]
  - Hyponatraemia [Unknown]
  - Blood disorder [Unknown]
  - Adverse event [Unknown]
  - Palmar-plantar erythrodysaesthesia syndrome [Unknown]
  - Blood alkaline phosphatase increased [Unknown]
